FAERS Safety Report 5566695-4 (Version None)
Quarter: 2007Q4

REPORT INFORMATION
  Report Type: 
  Country: None (occurrence: None)
  Receive Date: 20071218
  Receipt Date: 20071218
  Transmission Date: 20080405
  Serious: Yes (Hospitalization)
  Sender: FDA-Public Use
  Company Number: None

PATIENT
  Sex: Female
  Weight: 78.4723 kg

DRUGS (2)
  1. TRILAFON [Suspect]
     Indication: DEPRESSION
     Dosage: 1 1/2 TABS  BEDTIME  PO
     Route: 048
     Dates: start: 20070817, end: 20071012
  2. TRILAFON [Suspect]
     Indication: POST CONCUSSION SYNDROME
     Dosage: 1 1/2 TABS  BEDTIME  PO
     Route: 048
     Dates: start: 20070817, end: 20071012

REACTIONS (4)
  - DYSKINESIA [None]
  - JOINT DISLOCATION [None]
  - MUSCLE SPASMS [None]
  - ROTATOR CUFF SYNDROME [None]
